FAERS Safety Report 8619686 (Version 3)
Quarter: 2015Q1

REPORT INFORMATION
  Report Type: Spontaneous
  Country: US (occurrence: US)
  Receive Date: 20120618
  Receipt Date: 20150313
  Transmission Date: 20150721
  Serious: Yes (Hospitalization, Other)
  Sender: FDA-Public Use
  Company Number: US-ROCHE-1076628

PATIENT
  Age: 65 Year
  Sex: Female

DRUGS (6)
  1. BONIVA [Suspect]
     Active Substance: IBANDRONATE SODIUM
     Indication: OSTEOPOROSIS
     Route: 048
  2. FOSAMAX [Suspect]
     Active Substance: ALENDRONATE SODIUM
     Indication: OSTEOPOROSIS
     Route: 048
     Dates: start: 200310, end: 200410
  3. BONIVA [Suspect]
     Active Substance: IBANDRONATE SODIUM
     Route: 048
     Dates: start: 200901, end: 201101
  4. BONIVA [Suspect]
     Active Substance: IBANDRONATE SODIUM
     Route: 048
     Dates: start: 200301, end: 200612
  5. BONIVA [Suspect]
     Active Substance: IBANDRONATE SODIUM
     Route: 048
     Dates: start: 200207, end: 200209
  6. BONIVA [Suspect]
     Active Substance: IBANDRONATE SODIUM
     Route: 048
     Dates: start: 200701, end: 200811

REACTIONS (22)
  - Nasal congestion [Unknown]
  - Abdominal pain upper [Unknown]
  - Stomatitis [Unknown]
  - Insomnia [Unknown]
  - Haemoglobin decreased [Unknown]
  - White blood cell count increased [Unknown]
  - Rash [Unknown]
  - Oropharyngeal pain [Unknown]
  - Bronchitis [Unknown]
  - Atypical pneumonia [Unknown]
  - Fracture displacement [Unknown]
  - Lumbar spinal stenosis [Unknown]
  - Phlebitis [Unknown]
  - Meniscus injury [Unknown]
  - Furuncle [Unknown]
  - Transient global amnesia [Recovered/Resolved]
  - Cough [Unknown]
  - Rectal haemorrhage [Unknown]
  - Platelet count increased [Unknown]
  - Gastroenteritis [Unknown]
  - Carpal tunnel syndrome [Unknown]
  - Depression [Unknown]

NARRATIVE: CASE EVENT DATE: 2003
